FAERS Safety Report 22047310 (Version 3)
Quarter: 2023Q1

REPORT INFORMATION
  Report Type: Report from Study
  Country: CR (occurrence: CR)
  Receive Date: 20230301
  Receipt Date: 20230331
  Transmission Date: 20230417
  Serious: Yes (Other)
  Sender: FDA-Public Use
  Company Number: CR-002147023-NVSC2023CR043013

PATIENT
  Sex: Female
  Weight: 54 kg

DRUGS (4)
  1. HYDROCHLOROTHIAZIDE\VALSARTAN [Suspect]
     Active Substance: HYDROCHLOROTHIAZIDE\VALSARTAN
     Indication: Hypertension
     Dosage: 1 DOSAGE FORM, QD (80/12.5 MG)
     Route: 048
     Dates: start: 1996, end: 20230220
  2. LEVOTHYROXINE SODIUM [Concomitant]
     Active Substance: LEVOTHYROXINE SODIUM
     Indication: Thyroid disorder
     Dosage: 50 MG (FROM MONDAY TO FRIDAY) (STARTED MORE THAN 15 YEARS AGO)
     Route: 065
  3. LEVOTHYROXINE SODIUM [Concomitant]
     Active Substance: LEVOTHYROXINE SODIUM
     Dosage: 100 MG (FROM SATURDAY TO SUNDAY)
     Route: 065
  4. LEVOTHYROXINE SODIUM [Concomitant]
     Active Substance: LEVOTHYROXINE SODIUM
     Dosage: UNK
     Route: 065

REACTIONS (7)
  - Cardiac failure [Recovered/Resolved]
  - Hypotension [Recovered/Resolved]
  - Pain [Recovering/Resolving]
  - Pain in extremity [Recovering/Resolving]
  - Tachycardia [Recovering/Resolving]
  - Dizziness [Recovered/Resolved]
  - Headache [Recovering/Resolving]

NARRATIVE: CASE EVENT DATE: 20210101
